FAERS Safety Report 5570028-7 (Version None)
Quarter: 2007Q4

REPORT INFORMATION
  Report Type: 
  Country: None (occurrence: None)
  Receive Date: 20071217
  Receipt Date: 20071130
  Transmission Date: 20080405
  Serious: Yes (Other)
  Sender: FDA-Public Use
  Company Number: 2007JP005544

PATIENT
  Sex: Female
  Weight: 38.8 kg

DRUGS (24)
  1. TACROLIMUS [Suspect]
     Indication: RHEUMATOID ARTHRITIS
     Dosage: 1 MG, /D, ORAL, 1.5 /D, ORAL
     Route: 048
     Dates: start: 20061214, end: 20061224
  2. TACROLIMUS [Suspect]
     Indication: RHEUMATOID ARTHRITIS
     Dosage: 1 MG, /D, ORAL, 1.5 /D, ORAL
     Route: 048
     Dates: start: 20061225
  3. RHEUMATREX [Suspect]
     Dosage: 4 MG, WEEKLY, ORAL
     Route: 048
     Dates: start: 20070111, end: 20070113
  4. PREDNISONE [Concomitant]
  5. MOBIC [Concomitant]
  6. AZULFIDINE EN-TABS [Concomitant]
  7. LOXONIN (LOXOPROFEN) [Concomitant]
  8. GASTER D ORODISPERSABLE CR TABLET [Concomitant]
  9. ZOLPIDEM TARTRATE [Concomitant]
  10. DEPAS (ETIZOLAM) [Concomitant]
  11. MARZULENE (SODIUM GUALENATE) [Concomitant]
  12. BONALON (ALEDRONIC ACID) [Concomitant]
  13. MERCAZOLE (THIAMAZOLE) [Concomitant]
  14. PENTAZOCINE LACTATE [Concomitant]
  15. LEVOFLOXACIN [Concomitant]
  16. AMPICILLIN SODIUM W/SULBACTAM SODIUM (AMPICILLIN SODIUM, SULBACTAM SOD [Concomitant]
  17. CYTOTEC [Concomitant]
  18. FOLIC ACID [Concomitant]
  19. FLAVERIC (BENPROPERINE PHOSPHATE) [Concomitant]
  20. MUCOSOLVAN (AMBROXOL) [Concomitant]
  21. ALFAROL (ALFACALCIDOL) [Concomitant]
  22. NICHICODE [Concomitant]
  23. SUCRALFATE [Concomitant]
  24. FLAGYL [Concomitant]

REACTIONS (2)
  - PSEUDOMEMBRANOUS COLITIS [None]
  - PYREXIA [None]
